FAERS Safety Report 4919889-2 (Version None)
Quarter: 2006Q1

REPORT INFORMATION
  Report Type: 
  Country: None (occurrence: None)
  Receive Date: 20060223
  Receipt Date: 20050620
  Transmission Date: 20060701
  Serious: Yes (Hospitalization, Other)
  Sender: FDA-Public Use
  Company Number: GB-ABBOTT-05P-167-0303594-00

PATIENT
  Age: 60 Year
  Sex: Female

DRUGS (3)
  1. ERYTHROMYCIN [Suspect]
     Indication: INFECTION
     Route: 048
     Dates: start: 20050411, end: 20050418
  2. PHENYTOIN SODIUM [Interacting]
     Indication: EPILEPSY
     Route: 048
  3. ORCIPRENALINE [Concomitant]
     Indication: DRUG USE FOR UNKNOWN INDICATION

REACTIONS (5)
  - ANTICONVULSANT DRUG LEVEL INCREASED [None]
  - BALANCE DISORDER [None]
  - DRUG INTERACTION [None]
  - INFECTION [None]
  - RESPIRATORY DISORDER [None]
